FAERS Safety Report 23450183 (Version 1)
Quarter: 2024Q1

REPORT INFORMATION
  Report Type: Spontaneous
  Country: US (occurrence: US)
  Receive Date: 20240129
  Receipt Date: 20240129
  Transmission Date: 20240409
  Serious: Yes (Death)
  Sender: FDA-Public Use
  Company Number: US-JNJFOC-20240148445

PATIENT
  Sex: Female

DRUGS (1)
  1. LISTERINE ORIGINAL [Suspect]
     Active Substance: EUCALYPTOL\MENTHOL\METHYL SALICYLATE\THYMOL
     Indication: Product used for unknown indication
     Dosage: 4 OR 5 TIMES A DAY
     Route: 065

REACTIONS (2)
  - Inappropriate schedule of product administration [Fatal]
  - Throat cancer [Fatal]
